FAERS Safety Report 9825764 (Version 1)
Quarter: 2013Q4

REPORT INFORMATION
  Report Type: Spontaneous
  Country: US (occurrence: None)
  Receive Date: 20131028
  Receipt Date: 20131028
  Transmission Date: 20140711
  Serious: Yes (Other)
  Sender: FDA-Public Use
  Company Number: 2013US001910

PATIENT
  Age: 81 Year
  Sex: Female
  Weight: 61.01 kg

DRUGS (4)
  1. ICLUSIG [Suspect]
     Indication: CHRONIC MYELOID LEUKAEMIA
     Route: 048
     Dates: start: 20130628
  2. FELODIPINE (FELODIPINE) [Concomitant]
  3. CIPRO (CIPROFLOXACIN) [Concomitant]
  4. CERTA-VITE SENIOR (VITAMINS NOS) [Concomitant]

REACTIONS (9)
  - Poor quality sleep [None]
  - Erythema [None]
  - Haematoma [None]
  - Mouth haemorrhage [None]
  - Decreased appetite [None]
  - Dyspnoea [None]
  - Nausea [None]
  - Dizziness [None]
  - Fatigue [None]
